FAERS Safety Report 8809114 (Version 1)
Quarter: 2012Q4

REPORT INFORMATION
  Report Type: Spontaneous
  Country: US (occurrence: None)
  Receive Date: 20120921
  Receipt Date: 20120921
  Transmission Date: 20130627
  Serious: Yes (Life-Threatening, Hospitalization, Disabling)
  Sender: FDA-Public Use
  Company Number: None

PATIENT
  Age: 40 Year
  Sex: Female
  Weight: 65.77 kg

DRUGS (6)
  1. HUMIRA [Suspect]
     Indication: RHEUMATOID ARTHRITIS
     Dosage: 40 mg every other week IM
     Route: 030
     Dates: start: 2007, end: 201203
  2. MEDROL [Concomitant]
  3. METHROTEXATE [Concomitant]
  4. LYRICA [Concomitant]
  5. WELLBUTRIN XL [Concomitant]
  6. FOLIC ACID [Concomitant]

REACTIONS (8)
  - Headache [None]
  - Brain neoplasm [None]
  - Lymphoma [None]
  - Rosai-Dorfman syndrome [None]
  - Tumour compression [None]
  - Trigeminal neuralgia [None]
  - Impaired work ability [None]
  - Quality of life decreased [None]
